FAERS Safety Report 17823641 (Version 1)
Quarter: 2020Q2

REPORT INFORMATION
  Report Type: Spontaneous
  Country: US (occurrence: US)
  Receive Date: 20200526
  Receipt Date: 20200526
  Transmission Date: 20200714
  Serious: No
  Sender: FDA-Public Use
  Company Number: US-MYLANLABS-2020M1049642

PATIENT
  Sex: Male

DRUGS (1)
  1. FENTANYL TRANSDERMAL SYSTEM [Suspect]
     Active Substance: FENTANYL
     Indication: PAIN
     Dosage: 3 BOXES/MONTH
     Route: 062

REACTIONS (4)
  - Product size issue [Recovering/Resolving]
  - Product adhesion issue [Recovering/Resolving]
  - Incorrect dose administered [Recovering/Resolving]
  - Therapeutic product effect incomplete [Recovering/Resolving]
